FAERS Safety Report 10539343 (Version 2)
Quarter: 2015Q1

REPORT INFORMATION
  Report Type: Other
  Country: US (occurrence: US)
  Receive Date: 20141023
  Receipt Date: 20150204
  Transmission Date: 20150720
  Serious: Yes (Death, Hospitalization, Other)
  Sender: FDA-Public Use
  Company Number: US-GSKPPD-2014GSK013984

PATIENT
  Age: 87 Year
  Sex: Female

DRUGS (5)
  1. COUMADIN [Concomitant]
     Active Substance: WARFARIN SODIUM
  2. AVANDIA [Suspect]
     Active Substance: ROSIGLITAZONE MALEATE
     Indication: DIABETES MELLITUS
     Dosage: DATES OF AVANDIA USE COULD NOT BE CONFIRMED IN RECORDS REVIEWED.
     Route: 048
  3. MONOPRIL [Concomitant]
     Active Substance: FOSINOPRIL SODIUM
  4. ASPIRIN. [Concomitant]
     Active Substance: ASPIRIN
  5. LANOXIN [Concomitant]
     Active Substance: DIGOXIN

REACTIONS (5)
  - Atrial fibrillation [Recovered/Resolved]
  - Cardiomyopathy acute [Not Recovered/Not Resolved]
  - Myocardial infarction [Unknown]
  - Cardiac failure congestive [Recovered/Resolved]
  - Cardiac arrest [Fatal]

NARRATIVE: CASE EVENT DATE: 20100115
